FAERS Safety Report 4310276-7 (Version None)
Quarter: 2004Q1

REPORT INFORMATION
  Report Type: 
  Country: None (occurrence: None)
  Receive Date: 20040301
  Receipt Date: 20040301
  Transmission Date: 20041129
  Serious: Yes (Hospitalization)
  Sender: FDA-Public Use
  Company Number: None

PATIENT
  Age: 46 Year
  Sex: Female

DRUGS (4)
  1. LINEZOLID [Suspect]
     Indication: POSTOPERATIVE INFECTION
     Dosage: VARIOUS
     Dates: start: 20030729, end: 20030909
  2. RIFAMPIN [Suspect]
     Dosage: VARIOUS
     Dates: start: 20030729, end: 20030909
  3. CIPROFLOXACIN [Suspect]
  4. VANCOMYCIN [Suspect]

REACTIONS (1)
  - DERMATITIS [None]
